FAERS Safety Report 9893976 (Version 4)
Quarter: 2014Q2

REPORT INFORMATION
  Report Type: Spontaneous
  Country: US (occurrence: US)
  Receive Date: 20140213
  Receipt Date: 20140418
  Transmission Date: 20141212
  Serious: No
  Sender: FDA-Public Use
  Company Number: US-PFIZER INC-2014039997

PATIENT
  Age: 51 Year
  Sex: Male

DRUGS (7)
  1. LYRICA [Suspect]
     Dosage: 75 MG, 2X/DAY
     Route: 048
  2. OMEPRAZOLE [Suspect]
     Dosage: UNK
  3. BYSTOLIC [Suspect]
     Dosage: UNK
  4. ZYRTEC [Suspect]
     Dosage: UNK
  5. NEXIUM [Suspect]
     Dosage: UNK
  6. FLEXERIL [Suspect]
     Dosage: UNK
  7. ZOCOR [Suspect]
     Dosage: UNK

REACTIONS (1)
  - Drug hypersensitivity [Unknown]
